FAERS Safety Report 26179185 (Version 1)
Quarter: 2025Q4

REPORT INFORMATION
  Report Type: Spontaneous
  Country: US (occurrence: None)
  Receive Date: 20251219
  Receipt Date: 20251219
  Transmission Date: 20260118
  Serious: No
  Sender: ENCUBE ETHICALS PVT. LTD.
  Company Number: US-Encube-002709

PATIENT
  Age: 72 Year
  Sex: Female

DRUGS (1)
  1. CLOBETASOL PROPIONATE [Suspect]
     Active Substance: CLOBETASOL PROPIONATE
     Indication: Lichen sclerosus
     Dates: start: 20251205, end: 20251208

REACTIONS (4)
  - Application site pain [Unknown]
  - Application site erythema [Unknown]
  - Off label use [Unknown]
  - Application site burn [Unknown]

NARRATIVE: CASE EVENT DATE: 20251205
